FAERS Safety Report 26041418 (Version 1)
Quarter: 2025Q4

REPORT INFORMATION
  Report Type: Spontaneous
  Country: US (occurrence: US)
  Receive Date: 20251113
  Receipt Date: 20251113
  Transmission Date: 20260117
  Serious: No
  Sender: TEVA
  Company Number: US-TEVA-VS-3387485

PATIENT
  Age: 76 Year
  Sex: Female

DRUGS (1)
  1. AUSTEDO XR [Suspect]
     Active Substance: DEUTETRABENAZINE
     Indication: Dyskinesia
     Route: 065
     Dates: start: 202510

REACTIONS (4)
  - Fatigue [Unknown]
  - Dyskinesia [Unknown]
  - Drug effect less than expected [Unknown]
  - Stress [Unknown]
